FAERS Safety Report 13295783 (Version 1)
Quarter: 2017Q1

REPORT INFORMATION
  Report Type: Spontaneous
  Country: US (occurrence: US)
  Receive Date: 20170303
  Receipt Date: 20170303
  Transmission Date: 20170428
  Serious: No
  Sender: FDA-Public Use
  Company Number: US-ACTELION-A-NJ2017-150648

PATIENT
  Age: 56 Year
  Sex: Female
  Weight: 71.2 kg

DRUGS (2)
  1. UPTRAVI [Suspect]
     Active Substance: SELEXIPAG
     Indication: PULMONARY ARTERIAL HYPERTENSION
     Route: 048
  2. REMODULIN [Suspect]
     Active Substance: TREPROSTINIL
     Indication: PULMONARY ARTERIAL HYPERTENSION
     Dosage: 19 NG/KG, PER MIN
     Route: 058
     Dates: start: 20110329

REACTIONS (2)
  - Asthenia [Unknown]
  - Somnolence [Unknown]

NARRATIVE: CASE EVENT DATE: 201702
